FAERS Safety Report 24037450 (Version 1)
Quarter: 2024Q3

REPORT INFORMATION
  Report Type: Spontaneous
  Country: US (occurrence: US)
  Receive Date: 20240702
  Receipt Date: 20240702
  Transmission Date: 20241017
  Serious: Yes (Other)
  Sender: CIPLA
  Company Number: US-CIPLA LTD.-2024US04795

PATIENT

DRUGS (1)
  1. ALBUTEROL [Suspect]
     Active Substance: ALBUTEROL
     Indication: Chronic obstructive pulmonary disease
     Dosage: 2 PUFFS (180 MCG) EACH TIME (1%)
     Route: 065
     Dates: start: 20240423

REACTIONS (4)
  - Dyspnoea [Unknown]
  - Product packaging quantity issue [Unknown]
  - Device malfunction [Unknown]
  - Wrong technique in product usage process [Unknown]

NARRATIVE: CASE EVENT DATE: 20240505
